FAERS Safety Report 4600620-5 (Version None)
Quarter: 2005Q1

REPORT INFORMATION
  Report Type: 
  Country: None (occurrence: None)
  Receive Date: 20050127
  Receipt Date: 20041123
  Transmission Date: 20050727
  Serious: Yes (Other)
  Sender: FDA-Public Use
  Company Number: USA041080740

PATIENT
  Age: 6 Year
  Sex: Female
  Weight: 17 kg

DRUGS (1)
  1. STRATTERA [Suspect]
     Indication: ATTENTION DEFICIT/HYPERACTIVITY DISORDER
     Dosage: 25 MG DAY
     Dates: start: 20040921

REACTIONS (4)
  - HEART RATE INCREASED [None]
  - NAUSEA [None]
  - PRESCRIBED OVERDOSE [None]
  - VOMITING [None]
